FAERS Safety Report 22348664 (Version 1)
Quarter: 2023Q2

REPORT INFORMATION
  Report Type: Spontaneous
  Country: ES (occurrence: ES)
  Receive Date: 20230522
  Receipt Date: 20230522
  Transmission Date: 20230722
  Serious: Yes (Death, Other)
  Sender: FDA-Public Use
  Company Number: ES-JAZZ-2023-ES-002650

PATIENT

DRUGS (15)
  1. VYXEOS [Suspect]
     Active Substance: CYTARABINE\DAUNORUBICIN
     Indication: Product used for unknown indication
     Dosage: DAUNORUBICIN 93.8 MG/CYTARABINE 213 MG
     Dates: start: 20230125
  2. PANTOPRAZOLE [Concomitant]
     Active Substance: PANTOPRAZOLE
     Dosage: UNK
  3. ENALAPRIL [Concomitant]
     Active Substance: ENALAPRIL
     Dosage: UNK
     Dates: start: 20230126
  4. AMLODIPINE BESYLATE [Concomitant]
     Active Substance: AMLODIPINE BESYLATE
     Dosage: 5 MG/12H
  5. SEVELAMER [Concomitant]
     Active Substance: SEVELAMER
     Dosage: 800 MG/8H
  6. LANTUS [Concomitant]
     Active Substance: INSULIN GLARGINE
     Dosage: UNK
  7. ACYCLOVIR [Concomitant]
     Active Substance: ACYCLOVIR
     Dosage: 800 MG/12H
  8. RASBURICASA [Concomitant]
     Dosage: 19.5 MG/24H
  9. DIAZEPAM [Concomitant]
     Active Substance: DIAZEPAM
     Dosage: 5 MG/24H
  10. MAGNESIUM [Concomitant]
     Active Substance: MAGNESIUM
     Dosage: 53 MG/12H
  11. FUROSEMIDE [Concomitant]
     Active Substance: FUROSEMIDE
     Dosage: 20 MG/24H
  12. ONDANSETRON [Concomitant]
     Active Substance: ONDANSETRON
     Dosage: 8 MG/8H
  13. MEROPENEM [Concomitant]
     Active Substance: MEROPENEM
     Dosage: 1 G/8H
     Dates: start: 20230125
  14. MIRTAZAPINE [Concomitant]
     Active Substance: MIRTAZAPINE
     Dosage: UNK
     Dates: start: 20230126
  15. KONAKION [Concomitant]
     Active Substance: PHYTONADIONE
     Dosage: 10MG/24H

REACTIONS (4)
  - Cerebral haemorrhage [Fatal]
  - Tumour lysis syndrome [Unknown]
  - Renal failure [Unknown]
  - Hypertension [Unknown]
